FAERS Safety Report 5201575-5 (Version None)
Quarter: 2006Q4

REPORT INFORMATION
  Report Type: 
  Country: None (occurrence: None)
  Receive Date: 20061006
  Receipt Date: 20060721
  Transmission Date: 20070319
  Serious: Yes (Other)
  Sender: FDA-Public Use
  Company Number: PHEH2006US08382

PATIENT
  Sex: Female

DRUGS (1)
  1. ESTALIS COMBIPATCH(ESTRADIOL, NORETHISTERONE ACETATE) TRANS-THERAPEUTI [Suspect]
     Indication: HORMONE REPLACEMENT THERAPY
     Dosage: 0.05/0.25 MG/DAY, TRANSDERMAL
     Route: 062

REACTIONS (4)
  - BREAST CANCER [None]
  - EMOTIONAL DISORDER [None]
  - PAIN [None]
  - SURGERY [None]
